FAERS Safety Report 8368126-8 (Version None)
Quarter: 2012Q2

REPORT INFORMATION
  Report Type: 
  Country: None (occurrence: None)
  Receive Date: 20120517
  Receipt Date: 20120504
  Transmission Date: 20120825
  Serious: Yes (Other)
  Sender: FDA-Public Use
  Company Number: AU-MYLANLABS-2012S1009243

PATIENT
  Sex: Female

DRUGS (2)
  1. METFORMIN HCL [Suspect]
     Indication: POLYCYSTIC OVARIES
     Dates: start: 20080101
  2. LEXAPRO [Concomitant]

REACTIONS (1)
  - PANCREATITIS [None]
